FAERS Safety Report 10358476 (Version 3)
Quarter: 2014Q3

REPORT INFORMATION
  Report Type: Spontaneous
  Country: US (occurrence: US)
  Receive Date: 20140801
  Receipt Date: 20140825
  Transmission Date: 20150326
  Serious: Yes (Death, Other)
  Sender: FDA-Public Use
  Company Number: US-ABBVIE-14P-163-1266293-00

PATIENT
  Sex: Male
  Weight: 90.8 kg

DRUGS (6)
  1. UNKNOWN HEART PILLS [Concomitant]
     Indication: CARDIAC DISORDER
     Dates: end: 2012
  2. CHEMOTHERAPEUTICS [Concomitant]
     Active Substance: UNSPECIFIED INGREDIENT
     Indication: PRODUCT USED FOR UNKNOWN INDICATION
     Dates: start: 2012, end: 2012
  3. TRICOR [Suspect]
     Active Substance: FENOFIBRATE
     Indication: BLOOD CHOLESTEROL INCREASED
  4. UNKNOWN BLOOD PRESSURE PILLS [Concomitant]
     Indication: HYPERTENSION
     Dates: end: 2012
  5. TRICOR [Suspect]
     Active Substance: FENOFIBRATE
     Indication: BLOOD TRIGLYCERIDES INCREASED
     Route: 048
     Dates: start: 2007, end: 2012
  6. LASIX [Concomitant]
     Active Substance: FUROSEMIDE
     Indication: DIURETIC THERAPY
     Dates: start: 2012, end: 2012

REACTIONS (9)
  - Dysphagia [Fatal]
  - Pseudolymphoma [Recovered/Resolved]
  - Cardiac failure [Fatal]
  - Hepatic cirrhosis [Fatal]
  - Abdominal distension [Not Recovered/Not Resolved]
  - Ascites [Fatal]
  - Fluid imbalance [Fatal]
  - Pleural effusion [Fatal]
  - Platelet count decreased [Not Recovered/Not Resolved]

NARRATIVE: CASE EVENT DATE: 2011
